FAERS Safety Report 12202274 (Version 1)
Quarter: 2016Q1

REPORT INFORMATION
  Report Type: Spontaneous
  Country: FR (occurrence: FR)
  Receive Date: 20160322
  Receipt Date: 20160322
  Transmission Date: 20160526
  Serious: Yes (Death, Hospitalization)
  Sender: FDA-Public Use
  Company Number: FR-ASTRAZENECA-2016SE29966

PATIENT
  Age: 26535 Day
  Sex: Female

DRUGS (13)
  1. CELLCEPT [Suspect]
     Active Substance: MYCOPHENOLATE MOFETIL\MYCOPHENOLATE MOFETIL HYDROCHLORIDE
     Indication: RENAL TRANSPLANT
     Route: 048
     Dates: start: 20160214, end: 20160304
  2. BACTRIM [Suspect]
     Active Substance: SULFAMETHOXAZOLE\TRIMETHOPRIM
     Indication: INFECTION PROPHYLAXIS
     Route: 048
     Dates: start: 20160217, end: 201603
  3. AMLODIPINE [Suspect]
     Active Substance: AMLODIPINE BESYLATE
     Route: 048
     Dates: start: 20160225, end: 20160304
  4. KERLONE [Concomitant]
     Active Substance: BETAXOLOL HYDROCHLORIDE
  5. MIMPARA [Concomitant]
     Active Substance: CINACALCET HYDROCHLORIDE
  6. NEORAL [Suspect]
     Active Substance: CYCLOSPORINE
     Indication: RENAL TRANSPLANT
     Route: 048
     Dates: start: 20160217, end: 20160304
  7. THYMOGLOBULINE [Suspect]
     Active Substance: LAPINE T-LYMPHOCYTE IMMUNE GLOBULIN
     Indication: RENAL TRANSPLANT
     Route: 042
     Dates: start: 20160213, end: 20160217
  8. TAHOR [Suspect]
     Active Substance: ATORVASTATIN CALCIUM
     Indication: DYSLIPIDAEMIA
     Route: 048
     Dates: start: 20130219, end: 20160304
  9. FUNGIZONE [Suspect]
     Active Substance: AMPHOTERICIN B
     Indication: INFECTION PROPHYLAXIS
     Route: 048
     Dates: start: 20160213, end: 20160304
  10. COUMADIN [Concomitant]
     Active Substance: WARFARIN SODIUM
  11. INEXIUM [Suspect]
     Active Substance: ESOMEPRAZOLE
     Indication: PROPHYLAXIS AGAINST GASTROINTESTINAL ULCER
     Route: 048
     Dates: start: 20160214, end: 20160304
  12. CORTANCYL [Suspect]
     Active Substance: PREDNISONE
     Indication: RENAL TRANSPLANT
     Route: 048
     Dates: start: 20160214, end: 20160304
  13. LASILIX [Suspect]
     Active Substance: FUROSEMIDE
     Indication: HYPERTENSION
     Route: 048
     Dates: start: 20160217, end: 20160304

REACTIONS (14)
  - Neutropenia [Fatal]
  - Body temperature increased [Unknown]
  - Rales [Unknown]
  - Erysipelas [Unknown]
  - Musculoskeletal chest pain [Unknown]
  - Haematoma [Unknown]
  - Bundle branch block right [Unknown]
  - Oedema peripheral [Unknown]
  - Septic shock [Fatal]
  - Multiple organ dysfunction syndrome [Fatal]
  - Pain in extremity [Unknown]
  - Platelet count decreased [Fatal]
  - Dyspnoea exertional [Unknown]
  - Lymphopenia [Fatal]

NARRATIVE: CASE EVENT DATE: 20160302
